FAERS Safety Report 9726416 (Version 2)
Quarter: 2015Q2

REPORT INFORMATION
  Report Type: Spontaneous
  Country: US (occurrence: US)
  Receive Date: 20131203
  Receipt Date: 20150428
  Transmission Date: 20150821
  Serious: Yes (Other)
  Sender: FDA-Public Use
  Company Number: US-BAYER-2013-145633

PATIENT
  Age: 20 Year
  Sex: Female

DRUGS (1)
  1. MIRENA [Suspect]
     Active Substance: LEVONORGESTREL
     Indication: CONTRACEPTION
     Dosage: UNK
     Route: 015
     Dates: start: 20120518, end: 201312

REACTIONS (9)
  - Polycystic ovaries [None]
  - Dyspareunia [None]
  - Genital haemorrhage [Not Recovered/Not Resolved]
  - Medical device complication [None]
  - Abdominal pain upper [None]
  - Vulvovaginal pain [None]
  - Amenorrhoea [Not Recovered/Not Resolved]
  - Medical device discomfort [None]
  - Device expulsion [None]

NARRATIVE: CASE EVENT DATE: 201305
